FAERS Safety Report 17590226 (Version 1)
Quarter: 2020Q1

REPORT INFORMATION
  Report Type: Spontaneous
  Country: US (occurrence: US)
  Receive Date: 20200326
  Receipt Date: 20200326
  Transmission Date: 20200409
  Serious: Yes (Other)
  Sender: FDA-Public Use
  Company Number: None

PATIENT
  Age: 70 Year
  Sex: Female
  Weight: 81 kg

DRUGS (16)
  1. CIPROFLOXACIN. [Suspect]
     Active Substance: CIPROFLOXACIN
     Indication: PSEUDOMONAS INFECTION
     Dosage: ?          QUANTITY:1 TABLET(S);?
     Route: 048
     Dates: start: 20200128, end: 20200210
  2. LANSOPRAZOLE. [Concomitant]
     Active Substance: LANSOPRAZOLE
  3. ACETAMINOPHEN. [Concomitant]
     Active Substance: ACETAMINOPHEN
  4. IBUPROFEN. [Concomitant]
     Active Substance: IBUPROFEN
  5. AZATHIOPRINE. [Concomitant]
     Active Substance: AZATHIOPRINE
  6. ANTIHISTAMINES [Concomitant]
     Active Substance: ANTIHISTAMINES NOS
  7. SYNTHROID [Concomitant]
     Active Substance: LEVOTHYROXINE SODIUM
  8. MUCINEX [Concomitant]
     Active Substance: GUAIFENESIN
  9. GABAPENTIN. [Concomitant]
     Active Substance: GABAPENTIN
  10. LOSARTAN. [Concomitant]
     Active Substance: LOSARTAN
  11. PROPRANOLOL [Concomitant]
     Active Substance: PROPRANOLOL HYDROCHLORIDE
  12. DECONGESTANTS [Concomitant]
  13. NUCALA [Concomitant]
     Active Substance: MEPOLIZUMAB
  14. ALVESCO [Concomitant]
     Active Substance: CICLESONIDE
  15. PREDNISONE. [Concomitant]
     Active Substance: PREDNISONE
  16. RANITIDINE. [Suspect]
     Active Substance: RANITIDINE

REACTIONS (1)
  - Tendonitis [None]

NARRATIVE: CASE EVENT DATE: 20200128
